FAERS Safety Report 9402777 (Version 3)
Quarter: 2013Q3

REPORT INFORMATION
  Report Type: Report from Study
  Country: US (occurrence: US)
  Receive Date: 20130716
  Receipt Date: 20130919
  Transmission Date: 20140515
  Serious: Yes (Other)
  Sender: FDA-Public Use
  Company Number: US-ROCHE-1249321

PATIENT
  Age: 69 Year
  Sex: Male
  Weight: 66.28 kg

DRUGS (3)
  1. AVASTIN [Suspect]
     Indication: NON-SMALL CELL LUNG CANCER
     Route: 042
     Dates: start: 20130226, end: 20130501
  2. AVASTIN [Suspect]
     Route: 042
     Dates: start: 20130722, end: 20130722
  3. AVASTIN [Suspect]
     Route: 042
     Dates: start: 20130226, end: 20130916

REACTIONS (6)
  - Cataract [Unknown]
  - Cataract operation [Recovering/Resolving]
  - Nasal dryness [Not Recovered/Not Resolved]
  - Fatigue [Not Recovered/Not Resolved]
  - Nasal discomfort [Not Recovered/Not Resolved]
  - Therapeutic product ineffective [Unknown]
